FAERS Safety Report 4427821-3 (Version None)
Quarter: 2004Q3

REPORT INFORMATION
  Report Type: 
  Country: None (occurrence: None)
  Receive Date: 20040812
  Receipt Date: 20040804
  Transmission Date: 20050211
  Serious: Yes (Other)
  Sender: FDA-Public Use
  Company Number: 207562

PATIENT
  Age: 70 Year
  Sex: Male

DRUGS (20)
  1. RITUXAN [Suspect]
     Indication: MANTLE CELL LYMPHOMA
     Dosage: 675 MG, INTRAVENOUS
     Route: 042
     Dates: start: 20040206
  2. FLUDARABINE PHOSPHATE [Suspect]
     Indication: MANTLE CELL LYMPHOMA
     Dosage: 70 MG, QD, ORAL
     Route: 048
     Dates: start: 20040105, end: 20040107
  3. FLUDARABINE PHOSPHATE [Suspect]
     Indication: MANTLE CELL LYMPHOMA
     Dosage: 70 MG, QD, ORAL
     Route: 048
     Dates: start: 20040206, end: 20040208
  4. CYCLOPHOSPHAMIDE [Concomitant]
  5. RASBURICASE (RASBURICASE) [Concomitant]
  6. GASTROGRAFIN (DIATRIZOATE MEGLUMINE) [Concomitant]
  7. BECLOMETHASONE (BECLOMETHASONE DIPROPIONATE) [Concomitant]
  8. GRANISETRON (GRANISETRON HYDROCHLORIDE) [Concomitant]
  9. DOMPERIDONE (DOMPERIDONE) [Concomitant]
  10. LANSOPRAZOLE [Concomitant]
  11. SULFAMETHOXAZOLE + TRIMETHOPRIM [Concomitant]
  12. CHLORHEXIDINE MOUTHWASH (CHLORHEXIDINE GLUCONATE) [Concomitant]
  13. NYSTATIN [Concomitant]
  14. METOCLOPRAMIDE (METOCLOPRAMIDE HYDROCHLORIDE) [Concomitant]
  15. FUROSEMIDE [Concomitant]
  16. VENTOLIN (ALBUTEROL SULFATE, ALBUTEROL) [Concomitant]
  17. MEPERIDINE HCL [Concomitant]
  18. ALLOPURINOL [Concomitant]
  19. ACETAMINOPHEN [Concomitant]
  20. CHLORPHENIRAMINE MALEATE [Concomitant]

REACTIONS (6)
  - DISEASE RECURRENCE [None]
  - GASTROINTESTINAL CARCINOMA [None]
  - GASTROINTESTINAL HAEMORRHAGE [None]
  - GENERAL PHYSICAL HEALTH DETERIORATION [None]
  - MANTLE CELL LYMPHOMA [None]
  - PANCYTOPENIA [None]
